FAERS Safety Report 4903105-1 (Version None)
Quarter: 2006Q1

REPORT INFORMATION
  Report Type: 
  Country: None (occurrence: None)
  Receive Date: 20060207
  Receipt Date: 20060130
  Transmission Date: 20060701
  Serious: Yes (Hospitalization)
  Sender: FDA-Public Use
  Company Number: US-JNJFOC-20040304946

PATIENT
  Sex: Male
  Weight: 90.72 kg

DRUGS (8)
  1. REMICADE [Suspect]
     Route: 042
  2. REMICADE [Suspect]
     Dosage: 3 MG/KG
     Route: 042
  3. REMICADE [Suspect]
     Dosage: 3 MG/KG
     Route: 042
  4. REMICADE [Suspect]
     Indication: ANKYLOSING SPONDYLITIS
     Route: 042
  5. ARTHROTEC [Concomitant]
     Route: 048
  6. ARTHROTEC [Concomitant]
     Indication: ANKYLOSING SPONDYLITIS
     Route: 048
  7. ASACOL [Concomitant]
     Indication: COLITIS
     Route: 048
  8. BEER [Concomitant]

REACTIONS (1)
  - PULMONARY TUBERCULOSIS [None]
